FAERS Safety Report 20972253 (Version 3)
Quarter: 2023Q1

REPORT INFORMATION
  Report Type: Report from Study
  Country: BR (occurrence: BR)
  Receive Date: 20220616
  Receipt Date: 20230217
  Transmission Date: 20230417
  Serious: Yes (Hospitalization)
  Sender: FDA-Public Use
  Company Number: BR-JNJFOC-20220616079

PATIENT
  Age: 30 Year
  Sex: Male

DRUGS (13)
  1. SPRAVATO [Suspect]
     Active Substance: ESKETAMINE
     Indication: Major depression
     Dosage: TREATMENT START DATE WAS ALSO REPORTED AS 05-MAY-2022, INDUCTION PHASE, FOR 2 WEEKS?INITIAL DOSE ON
     Dates: start: 20220324
  2. SPRAVATO [Suspect]
     Active Substance: ESKETAMINE
     Dosage: INDUCTION PHASE?SUBSEQUENT DOSES (FROM THE SECOND WEEK), 84MG PER SESSION
  3. SPRAVATO [Suspect]
     Active Substance: ESKETAMINE
     Dosage: OPTIMIZATION PHASE, FOR A PERIOD OF 4 WEEKS
  4. SPRAVATO [Suspect]
     Active Substance: ESKETAMINE
     Dosage: MAINTENANCE PHASE, (THIRD, FOURTH, FIFTH AND SIXTH MONTH OF TREATMENT), ONGOING
     Dates: end: 20220727
  5. DULOXETINE [Concomitant]
     Active Substance: DULOXETINE
     Dosage: 120MG/DAY
     Route: 065
  6. LISDEXAMFETAMINE DIMESYLATE [Concomitant]
     Active Substance: LISDEXAMFETAMINE DIMESYLATE
     Dosage: 30MG/DAY
     Route: 065
  7. BUPROPION [Concomitant]
     Active Substance: BUPROPION
     Dosage: 300 MG/DAY
     Route: 065
  8. MUPIROCIN [Concomitant]
     Active Substance: MUPIROCIN
     Route: 065
  9. DEPAKOTE [Concomitant]
     Active Substance: DIVALPROEX SODIUM
     Dosage: 1000MG/DAY
     Route: 065
  10. LURASIDONE [Concomitant]
     Active Substance: LURASIDONE
     Dosage: 40MG/DAY
     Route: 065
  11. CLONAZEPAM [Concomitant]
     Active Substance: CLONAZEPAM
     Dosage: 1 MG/DAY
     Route: 065
  12. MODAFINIL [Concomitant]
     Active Substance: MODAFINIL
     Dosage: 100 MG/DAY
     Route: 065
  13. ZOLPIDEM [Concomitant]
     Active Substance: ZOLPIDEM TARTRATE
     Dosage: 10 MG/DAY
     Route: 065

REACTIONS (1)
  - Depression [Not Recovered/Not Resolved]

NARRATIVE: CASE EVENT DATE: 20220101
